FAERS Safety Report 8196847-9 (Version None)
Quarter: 2012Q1

REPORT INFORMATION
  Report Type: 
  Country: None (occurrence: None)
  Receive Date: 20120227
  Receipt Date: 20111121
  Transmission Date: 20120608
  Serious: Yes (Other)
  Sender: FDA-Public Use
  Company Number: 335172

PATIENT
  Age: 42 Year
  Sex: Male
  Weight: 121 kg

DRUGS (7)
  1. CIALIS [Concomitant]
  2. KOMBIGLYZE (METFORMIN HYDROCHLORIDE, SAXAGLIPTIN HYDROCHLORIDE) [Concomitant]
  3. VICTOZA [Suspect]
     Indication: TYPE 2 DIABETES MELLITUS
     Dosage: 1.8 MG, QD, SUBCUTANEOUS 1.2 MG, QD, SUBCUTANEOUS 0.6 MG, QD, SUBCUTANEOUS
     Route: 058
     Dates: start: 20110701, end: 20110801
  4. VICTOZA [Suspect]
     Indication: TYPE 2 DIABETES MELLITUS
     Dosage: 1.8 MG, QD, SUBCUTANEOUS 1.2 MG, QD, SUBCUTANEOUS 0.6 MG, QD, SUBCUTANEOUS
     Route: 058
     Dates: start: 20110701, end: 20110701
  5. VICTOZA [Suspect]
     Indication: TYPE 2 DIABETES MELLITUS
     Dosage: 1.8 MG, QD, SUBCUTANEOUS 1.2 MG, QD, SUBCUTANEOUS 0.6 MG, QD, SUBCUTANEOUS
     Route: 058
     Dates: start: 20110801, end: 20110904
  6. LIPITOR [Concomitant]
  7. LISINOPRIL [Concomitant]

REACTIONS (5)
  - VOMITING [None]
  - DIARRHOEA [None]
  - ADVERSE EVENT [None]
  - NAUSEA [None]
  - PANCREATITIS [None]
